FAERS Safety Report 4362306-4 (Version None)
Quarter: 2004Q2

REPORT INFORMATION
  Report Type: 
  Country: None (occurrence: None)
  Receive Date: 20040517
  Receipt Date: 20040504
  Transmission Date: 20050107
  Serious: Yes (Hospitalization)
  Sender: FDA-Public Use
  Company Number: 04P-056-0259628-00

PATIENT
  Age: 65 Year
  Sex: Female

DRUGS (5)
  1. NAXY  (BIAXIN) (CLARITHROMYCIN) [Suspect]
     Indication: HELICOBACTER INFECTION
     Dosage: 500 MG, 2 IN 1 D, ORAL
     Route: 048
     Dates: start: 20031207, end: 20031214
  2. OMPRAZOLE (OMEPRAZOLE) [Suspect]
     Indication: HELICOBACTER INFECTION
     Dosage: 20 MG, ORAL
     Route: 048
     Dates: end: 20031214
  3. METRONIDAZOLE [Suspect]
     Indication: HELICOBACTER INFECTION
     Dosage: 500 MG, 2 IN 1 D, ORAL
     Route: 048
     Dates: start: 20031207, end: 20031214
  4. CARBAMAZEPINE [Suspect]
     Indication: EPILEPSY
     Dosage: 400 MG, 1 IN 1 D, ORAL
     Route: 048
     Dates: end: 20031201
  5. TOPIRMATE [Concomitant]

REACTIONS (13)
  - ABASIA [None]
  - BALANCE DISORDER [None]
  - BRAIN SCAN ABNORMAL [None]
  - COORDINATION ABNORMAL [None]
  - DRUG INTERACTION [None]
  - DRUG LEVEL INCREASED [None]
  - DYSARTHRIA [None]
  - EYE DISORDER [None]
  - FALL [None]
  - HYPERMETROPIA [None]
  - HYPONATRAEMIA [None]
  - IIIRD NERVE PARESIS [None]
  - NYSTAGMUS [None]
